FAERS Safety Report 6405744-8 (Version None)
Quarter: 2009Q4

REPORT INFORMATION
  Report Type: 
  Country: None (occurrence: None)
  Receive Date: 20091016
  Receipt Date: 20091016
  Transmission Date: 20100525
  Serious: No
  Sender: FDA-Public Use
  Company Number: None

PATIENT
  Sex: Male
  Weight: 53.0709 kg

DRUGS (1)
  1. GAMMAGARD [Suspect]
     Indication: HYPOGAMMAGLOBULINAEMIA
     Dosage: 20 GRAMS EVERY 4 WEEKS IV DRIP
     Route: 041
     Dates: start: 20091015, end: 20091015

REACTIONS (4)
  - ABDOMINAL PAIN [None]
  - BACK PAIN [None]
  - INFUSION RELATED REACTION [None]
  - PAIN IN EXTREMITY [None]
